FAERS Safety Report 24827960 (Version 1)
Quarter: 2025Q1

REPORT INFORMATION
  Report Type: Spontaneous
  Country: US (occurrence: US)
  Receive Date: 20250109
  Receipt Date: 20250109
  Transmission Date: 20250408
  Serious: No
  Sender: JOHNSON AND JOHNSON
  Company Number: US-KENVUE-20241103830

PATIENT
  Age: 84 Year
  Sex: Female

DRUGS (4)
  1. TYLENOL [Suspect]
     Active Substance: ACETAMINOPHEN
     Indication: Headache
     Route: 065
     Dates: start: 20241108
  2. TYLENOL [Suspect]
     Active Substance: ACETAMINOPHEN
     Indication: Nasopharyngitis
  3. TYLENOL [Suspect]
     Active Substance: ACETAMINOPHEN
     Indication: Toothache
  4. TYLENOL [Suspect]
     Active Substance: ACETAMINOPHEN
     Indication: Sneezing

REACTIONS (2)
  - Feeling abnormal [Unknown]
  - Product use in unapproved indication [Unknown]

NARRATIVE: CASE EVENT DATE: 20241108
